FAERS Safety Report 6230075-9 (Version None)
Quarter: 2009Q2

REPORT INFORMATION
  Report Type: 
  Country: None (occurrence: None)
  Receive Date: 20090615
  Receipt Date: 20090528
  Transmission Date: 20091009
  Serious: Yes (Hospitalization)
  Sender: FDA-Public Use
  Company Number: JP-GENENTECH-282846

PATIENT
  Sex: Female

DRUGS (6)
  1. AVASTIN [Suspect]
     Indication: COLON CANCER RECURRENT
     Dosage: 5 MG/KG, Q2W
     Route: 041
     Dates: start: 20081001
  2. CALCIUM LEVOFOLINATE [Suspect]
     Indication: COLON CANCER RECURRENT
     Dosage: 300 MG, UNK
     Route: 041
     Dates: start: 20081008, end: 20090501
  3. ELPLAT [Suspect]
     Indication: COLON CANCER RECURRENT
     Dosage: 100 MG, QD
     Route: 041
     Dates: start: 20081008, end: 20090501
  4. DEXAMETHASONE SODIUM PHOSPHATE [Suspect]
     Indication: PROPHYLAXIS OF NAUSEA AND VOMITING
     Dosage: 2 DF, QD
     Route: 042
     Dates: start: 20081008
  5. SEROTONE [Suspect]
     Indication: PROPHYLAXIS OF NAUSEA AND VOMITING
     Dosage: 10 MG, QD
     Route: 042
     Dates: start: 20081008, end: 20090501
  6. FLUOROURACIL [Concomitant]
     Indication: DRUG USE FOR UNKNOWN INDICATION
     Dosage: UNK

REACTIONS (1)
  - ANAPHYLACTOID REACTION [None]
